FAERS Safety Report 16046501 (Version 1)
Quarter: 2019Q2

REPORT INFORMATION
  Report Type: Spontaneous
  Country: US (occurrence: US)
  Receive Date: 20190307
  Receipt Date: 20190307
  Transmission Date: 20190711
  Serious: Yes (Hospitalization)
  Sender: FDA-Public Use
  Company Number: None

PATIENT
  Sex: Female

DRUGS (2)
  1. MONOVISC [Suspect]
     Active Substance: DEVICE
     Indication: OSTEOARTHRITIS
     Dosage: ?          OTHER FREQUENCY:ONCE;?
     Route: 014
  2. PROLIA [Suspect]
     Active Substance: DENOSUMAB
     Indication: OSTEOPOROSIS
     Dosage: ?          OTHER FREQUENCY:EVERY 6 MONTHS;?
     Route: 058

REACTIONS (2)
  - Therapy cessation [None]
  - Knee arthroplasty [None]
